FAERS Safety Report 9938288 (Version 1)
Quarter: 2014Q1

REPORT INFORMATION
  Report Type: Report from Study
  Country: US (occurrence: US)
  Receive Date: 20140303
  Receipt Date: 20140303
  Transmission Date: 20141002
  Serious: No
  Sender: FDA-Public Use
  Company Number: US-ABBVIE-13P-163-1031629-00

PATIENT
  Age: 25 Year
  Sex: Male

DRUGS (3)
  1. HUMIRA [Suspect]
     Indication: CROHN^S DISEASE
     Dates: start: 20120810
  2. LIALDA [Concomitant]
     Indication: CROHN^S DISEASE
  3. IRON [Concomitant]
     Indication: BLOOD IRON DECREASED
     Dosage: DAILY

REACTIONS (1)
  - Crohn^s disease [Recovering/Resolving]
